FAERS Safety Report 18223957 (Version 3)
Quarter: 2020Q4

REPORT INFORMATION
  Report Type: Spontaneous
  Country: US (occurrence: US)
  Receive Date: 20200902
  Receipt Date: 20201008
  Transmission Date: 20210113
  Serious: Yes (Hospitalization, Other)
  Sender: FDA-Public Use
  Company Number: US-TEVA-2020-US-1821683

PATIENT
  Age: 83 Year
  Sex: Female

DRUGS (7)
  1. QVAR [Suspect]
     Active Substance: BECLOMETHASONE DIPROPIONATE
     Dosage: ON ONE PUFF A DAY OF QVAR
     Route: 065
  2. QVAR [Suspect]
     Active Substance: BECLOMETHASONE DIPROPIONATE
  3. SYNTHROID [Concomitant]
     Active Substance: LEVOTHYROXINE SODIUM
     Route: 065
  4. PROAIR HFA [Suspect]
     Active Substance: ALBUTEROL SULFATE
     Dosage: 2 PUFF EVERY SIX HOURS
     Route: 065
     Dates: end: 20200917
  5. QVAR [Suspect]
     Active Substance: BECLOMETHASONE DIPROPIONATE
  6. PROAIR HFA [Suspect]
     Active Substance: ALBUTEROL SULFATE
     Indication: ASTHMA
     Dosage: TAKING FOR MANY YEARS AGO/USE PROAIR 2 TO 3 TIMES PER WEEK
     Route: 065
     Dates: end: 20200820
  7. LITHIUM. [Concomitant]
     Active Substance: LITHIUM
     Route: 065

REACTIONS (13)
  - Drug ineffective [Unknown]
  - Bipolar disorder [Unknown]
  - Dyspnoea [Recovered/Resolved]
  - Illness [Recovered/Resolved]
  - Heart rate increased [Recovered/Resolved]
  - Impaired driving ability [Recovered/Resolved]
  - Headache [Unknown]
  - Burning sensation [Unknown]
  - Near death experience [Recovered/Resolved]
  - Loss of consciousness [Recovered/Resolved]
  - Withdrawal syndrome [Recovered/Resolved]
  - Inappropriate schedule of product administration [Unknown]
  - Asthma [Unknown]

NARRATIVE: CASE EVENT DATE: 20171214
